FAERS Safety Report 23689030 (Version 4)
Quarter: 2024Q2

REPORT INFORMATION
  Report Type: Spontaneous
  Country: FR (occurrence: FR)
  Receive Date: 20240329
  Receipt Date: 20240530
  Transmission Date: 20240715
  Serious: Yes (Hospitalization)
  Sender: FDA-Public Use
  Company Number: FR-ROCHE-3526603

PATIENT
  Age: 71 Year
  Sex: Female
  Weight: 78 kg

DRUGS (49)
  1. CYCLOPHOSPHAMIDE [Suspect]
     Active Substance: CYCLOPHOSPHAMIDE
     Indication: Rhinitis
     Dosage: START DATE OF MOST RECENT DOSE OF STUDY DRUG PRIOR TO AE 29/FEB/2024
     Route: 042
     Dates: start: 20231208
  2. DOXORUBICIN [Suspect]
     Active Substance: DOXORUBICIN
     Indication: Anaemia
     Dosage: START DATE OF MOST RECENT DOSE OF STUDY DRUG PRIOR TO AE 29/FEB/2024
     Route: 042
     Dates: start: 20231208
  3. PREDNISONE [Suspect]
     Active Substance: PREDNISONE
     Indication: Diffuse large B-cell lymphoma
     Dosage: START DATE OF MOST RECENT DOSE OF STUDY DRUG PRIOR TO AE 04/MAR/2024
     Route: 048
     Dates: start: 20231207
  4. POLATUZUMAB VEDOTIN [Suspect]
     Active Substance: POLATUZUMAB VEDOTIN
     Indication: Diffuse large B-cell lymphoma
     Dosage: START DATE OF MOST RECENT DOSE OF STUDY DRUG PRIOR TO AE 29/FEB/2024
     Route: 042
     Dates: start: 20231207
  5. RITUXIMAB [Suspect]
     Active Substance: RITUXIMAB
     Indication: Diffuse large B-cell lymphoma
     Dosage: START DATE OF MOST RECENT DOSE OF STUDY DRUG PRIOR TO AE 29/FEB/2024
     Route: 042
     Dates: start: 20231207
  6. BACTRIM [Concomitant]
     Active Substance: SULFAMETHOXAZOLE\TRIMETHOPRIM
     Indication: Product used for unknown indication
     Dosage: 1 TABLET
     Route: 065
     Dates: start: 20240125
  7. BACTRIM [Concomitant]
     Active Substance: SULFAMETHOXAZOLE\TRIMETHOPRIM
     Dosage: 1 TABLET
     Route: 065
     Dates: start: 20240125
  8. BACTRIM [Concomitant]
     Active Substance: SULFAMETHOXAZOLE\TRIMETHOPRIM
     Dosage: 1 TABLET
     Route: 065
     Dates: start: 20240125
  9. BACTRIM [Concomitant]
     Active Substance: SULFAMETHOXAZOLE\TRIMETHOPRIM
     Dosage: 1 TABLET
     Route: 065
     Dates: start: 20240125
  10. BACTRIM [Concomitant]
     Active Substance: SULFAMETHOXAZOLE\TRIMETHOPRIM
     Dosage: 1 TABLET
     Route: 065
     Dates: start: 20240125
  11. BACTRIM [Concomitant]
     Active Substance: SULFAMETHOXAZOLE\TRIMETHOPRIM
     Dosage: 1 TABLET
     Route: 065
     Dates: start: 20240125
  12. BACTRIM [Concomitant]
     Active Substance: SULFAMETHOXAZOLE\TRIMETHOPRIM
     Dosage: 1 TABLET
     Route: 065
     Dates: start: 20240125
  13. BACTRIM [Concomitant]
     Active Substance: SULFAMETHOXAZOLE\TRIMETHOPRIM
     Dosage: 1 TABLET
     Route: 065
     Dates: start: 20240125
  14. CEFTRIAXONE [Concomitant]
     Active Substance: CEFTRIAXONE\CEFTRIAXONE SODIUM
     Indication: Product used for unknown indication
     Dosage: UNK
     Route: 065
  15. EBASTINE [Concomitant]
     Active Substance: EBASTINE
     Indication: Diffuse large B-cell lymphoma
     Dosage: 10.000MG QD
     Route: 065
  16. EBASTINE [Concomitant]
     Active Substance: EBASTINE
     Dosage: 10.000MG QD
     Route: 065
  17. EBASTINE [Concomitant]
     Active Substance: EBASTINE
     Dosage: 10.000MG QD
     Route: 065
  18. EBASTINE [Concomitant]
     Active Substance: EBASTINE
     Dosage: 10.000MG QD
     Route: 065
  19. LEUCOVORIN CALCIUM [Concomitant]
     Active Substance: LEUCOVORIN CALCIUM
     Dosage: 5.000MG
     Route: 065
     Dates: start: 20240208
  20. LEUCOVORIN CALCIUM [Concomitant]
     Active Substance: LEUCOVORIN CALCIUM
     Dosage: 5.000MG
     Route: 065
     Dates: start: 20240208
  21. LEUCOVORIN CALCIUM [Concomitant]
     Active Substance: LEUCOVORIN CALCIUM
     Dosage: 5.000MG
     Route: 065
     Dates: start: 20240208
  22. LEUCOVORIN CALCIUM [Concomitant]
     Active Substance: LEUCOVORIN CALCIUM
     Indication: Product used for unknown indication
     Dosage: 1 CAPSULE
     Route: 065
     Dates: start: 20240213, end: 20240213
  23. LEUCOVORIN CALCIUM [Concomitant]
     Active Substance: LEUCOVORIN CALCIUM
     Dosage: 1 CAPSULE
     Route: 065
     Dates: start: 20240213, end: 20240213
  24. LEUCOVORIN CALCIUM [Concomitant]
     Active Substance: LEUCOVORIN CALCIUM
     Dosage: 1 CAPSULE
     Route: 065
     Dates: start: 20240213, end: 20240213
  25. LEUCOVORIN CALCIUM [Concomitant]
     Active Substance: LEUCOVORIN CALCIUM
     Dosage: 1 CAPSULE
     Route: 065
     Dates: start: 20240213, end: 20240213
  26. CEFIXIME [Concomitant]
     Active Substance: CEFIXIME
     Dosage: 400.000MG QD
     Route: 065
     Dates: start: 20240208, end: 20240214
  27. CEFIXIME [Concomitant]
     Active Substance: CEFIXIME
     Dosage: 400.000MG QD
     Route: 065
     Dates: start: 20240208, end: 20240214
  28. CEFIXIME [Concomitant]
     Active Substance: CEFIXIME
     Dosage: 400.000MG QD
     Route: 065
     Dates: start: 20240208, end: 20240214
  29. CEFIXIME [Concomitant]
     Active Substance: CEFIXIME
     Indication: Rhinitis
     Dosage: 2 CAPSULE
     Route: 065
     Dates: start: 20240208, end: 20240215
  30. ACETAMINOPHEN [Concomitant]
     Active Substance: ACETAMINOPHEN
     Dosage: 1000.000MG QD
     Route: 065
     Dates: start: 20240229, end: 20240229
  31. ACETAMINOPHEN [Concomitant]
     Active Substance: ACETAMINOPHEN
     Dosage: 1000.000MG QD
     Route: 065
     Dates: start: 20240229, end: 20240229
  32. ACETAMINOPHEN [Concomitant]
     Active Substance: ACETAMINOPHEN
     Dosage: 1000.000MG QD
     Route: 065
     Dates: start: 20240311, end: 20240311
  33. ACETAMINOPHEN [Concomitant]
     Active Substance: ACETAMINOPHEN
     Dosage: 1000.000MG QD
     Route: 065
     Dates: start: 20240311, end: 20240311
  34. ACETAMINOPHEN [Concomitant]
     Active Substance: ACETAMINOPHEN
     Indication: Product used for unknown indication
     Dosage: UNK
     Route: 065
  35. POLARAMINE [Concomitant]
     Active Substance: DEXCHLORPHENIRAMINE MALEATE
     Dosage: 5.000MG QD
     Route: 065
     Dates: start: 20240229, end: 20240229
  36. POLARAMINE [Concomitant]
     Active Substance: DEXCHLORPHENIRAMINE MALEATE
     Dosage: 5.000MG QD
     Route: 065
     Dates: start: 20240229, end: 20240229
  37. POLARAMINE [Concomitant]
     Active Substance: DEXCHLORPHENIRAMINE MALEATE
     Indication: Product used for unknown indication
     Dosage: UNK
     Route: 065
  38. PRIMPERAN [Concomitant]
     Active Substance: METOCLOPRAMIDE HYDROCHLORIDE
     Indication: Nausea
     Dosage: 30.000MG
     Route: 065
     Dates: start: 20240113
  39. PRIMPERAN [Concomitant]
     Active Substance: METOCLOPRAMIDE HYDROCHLORIDE
     Indication: Nausea
     Dosage: 30.000MG
     Route: 065
     Dates: start: 20240113
  40. PRIMPERAN [Concomitant]
     Active Substance: METOCLOPRAMIDE HYDROCHLORIDE
     Indication: Product used for unknown indication
     Dosage: UNK
     Route: 065
  41. RETACRIT [Concomitant]
     Active Substance: EPOETIN ALFA-EPBX
     Indication: Diffuse large B-cell lymphoma
     Dosage: 30000.000DF
     Route: 065
     Dates: start: 20240111
  42. SODIUM BICARBONATE [Concomitant]
     Active Substance: SODIUM BICARBONATE
     Dosage: 1.400%
     Route: 065
     Dates: start: 20231207
  43. SODIUM BICARBONATE [Concomitant]
     Active Substance: SODIUM BICARBONATE
     Indication: Product used for unknown indication
     Dosage: UNK
     Route: 065
  44. TOBRAMYCIN SULFATE [Concomitant]
     Active Substance: TOBRAMYCIN SULFATE
     Indication: Product used for unknown indication
     Dosage: UNK
     Route: 065
  45. VALACYCLOVIR HYDROCHLORIDE [Concomitant]
     Active Substance: VALACYCLOVIR HYDROCHLORIDE
     Indication: Diffuse large B-cell lymphoma
     Dosage: 500.000MG
     Route: 065
     Dates: start: 20240125
  46. VALACYCLOVIR HYDROCHLORIDE [Concomitant]
     Active Substance: VALACYCLOVIR HYDROCHLORIDE
     Dosage: 500.000MG
     Route: 065
     Dates: start: 20240125
  47. VALACYCLOVIR HYDROCHLORIDE [Concomitant]
     Active Substance: VALACYCLOVIR HYDROCHLORIDE
     Dosage: 500.000MG
     Route: 065
     Dates: start: 20240125
  48. VALACYCLOVIR HYDROCHLORIDE [Concomitant]
     Active Substance: VALACYCLOVIR HYDROCHLORIDE
     Dosage: 500.000MG
     Route: 065
     Dates: start: 20240125
  49. ONDANSETRON [Concomitant]
     Active Substance: ONDANSETRON
     Indication: Product used for unknown indication
     Dosage: UNK
     Route: 065

REACTIONS (2)
  - Febrile neutropenia [Recovered/Resolved]
  - Bacteriuria [Recovered/Resolved]

NARRATIVE: CASE EVENT DATE: 20240311
